FAERS Safety Report 7761832-5 (Version None)
Quarter: 2011Q3

REPORT INFORMATION
  Report Type: 
  Country: None (occurrence: None)
  Receive Date: 20110920
  Receipt Date: 20110908
  Transmission Date: 20111222
  Serious: Yes (Other)
  Sender: FDA-Public Use
  Company Number: JP-PFIZER INC-2011204626

PATIENT
  Age: 62 Year
  Sex: Female

DRUGS (2)
  1. DOXORUBICIN HYDROCHLORIDE [Suspect]
     Indication: RENAL CELL CARCINOMA
     Dosage: 50 MG/M2, CYCLIC, ON DAY 1, EVERY 14 DAYS
  2. GEMCITABINE HYDROCHLORIDE [Suspect]
     Indication: RENAL CELL CARCINOMA
     Dosage: 1500 MG/M2, CYCLIC, ON DAY 1, EVERY 14 DAYS

REACTIONS (8)
  - INTERSTITIAL LUNG DISEASE [None]
  - ANAEMIA [None]
  - STOMATITIS [None]
  - LEUKOPENIA [None]
  - RED BLOOD CELL COUNT DECREASED [None]
  - BLOOD ALKALINE PHOSPHATASE INCREASED [None]
  - HAEMOGLOBIN DECREASED [None]
  - BACK PAIN [None]
